FAERS Safety Report 6910868-2 (Version None)
Quarter: 2010Q3

REPORT INFORMATION
  Report Type: 
  Country: None (occurrence: None)
  Receive Date: 20100716
  Receipt Date: 20090723
  Transmission Date: 20110219
  Serious: Yes (Other)
  Sender: FDA-Public Use
  Company Number: 2009245540

PATIENT

DRUGS (2)
  1. CELEBREX [Suspect]
  2. PNEUMOCOCCAL VACCINE (PNEUMOCOCCAL VACCINE) [Suspect]
     Indication: PNEUMONIA

REACTIONS (1)
  - VASCULITIS [None]
